FAERS Safety Report 5619905-9 (Version None)
Quarter: 2008Q1

REPORT INFORMATION
  Report Type: 
  Country: None (occurrence: None)
  Receive Date: 20080208
  Receipt Date: 20071205
  Transmission Date: 20080703
  Serious: Yes (Other)
  Sender: FDA-Public Use
  Company Number: US-ABBOTT-07P-163-0427562-00

PATIENT
  Sex: Male
  Weight: 83.99 kg

DRUGS (4)
  1. VICODIN [Suspect]
     Indication: BREAKTHROUGH PAIN
     Route: 048
     Dates: start: 20010101
  2. OXYCODONE HYDROCHLORIDE [Suspect]
     Indication: PAIN MANAGEMENT
     Route: 048
     Dates: start: 20010101
  3. PAXIL ER [Concomitant]
     Indication: DEPRESSION
     Route: 048
  4. CELECOXIB [Concomitant]
     Indication: DEPRESSION
     Route: 048

REACTIONS (1)
  - DEAFNESS UNILATERAL [None]
